FAERS Safety Report 8823355 (Version 2)
Quarter: 2012Q4

REPORT INFORMATION
  Report Type: 
  Country: US (occurrence: US)
  Receive Date: 20121003
  Receipt Date: 20121015
  Transmission Date: 20130627
  Serious: Yes (Hospitalization)
  Sender: FDA-Public Use
  Company Number: US-ELI_LILLY_AND_COMPANY-US201209007922

PATIENT
  Age: 50 None
  Sex: Male
  Weight: 129.25 kg

DRUGS (10)
  1. BYETTA [Suspect]
     Indication: TYPE 1 DIABETES MELLITUS
     Dosage: 5 ug, bid
     Route: 058
     Dates: start: 20120612, end: 20120814
  2. HUMALOG [Concomitant]
     Indication: INSULIN-REQUIRING TYPE 2 DIABETES MELLITUS
     Dosage: 40 u, tid
     Route: 058
  3. LANTUS [Concomitant]
     Indication: TYPE 1 DIABETES MELLITUS
     Dosage: 90 u, each evening
     Route: 058
  4. METFORMIN [Concomitant]
     Indication: INSULIN-REQUIRING TYPE 2 DIABETES MELLITUS
     Dosage: 1000 mg, bid
     Route: 048
  5. GABAPENTIN [Concomitant]
     Dosage: 600 mg, tid
     Route: 048
  6. LOSARTAN [Concomitant]
     Dosage: 50 mg, bid
     Route: 048
  7. SIMVASTATIN [Concomitant]
     Dosage: 20 mg, qd
     Route: 048
  8. NORCO [Concomitant]
     Dosage: 1 DF, UNK
     Route: 048
  9. CYMBALTA [Concomitant]
     Dosage: 60 mg, qd
  10. GLIPIZIDE [Concomitant]
     Dosage: 10 mg, bid

REACTIONS (27)
  - Tooth infection [Not Recovered/Not Resolved]
  - Vomiting [Not Recovered/Not Resolved]
  - Diarrhoea [Not Recovered/Not Resolved]
  - Dehydration [Not Recovered/Not Resolved]
  - Swelling [Recovered/Resolved]
  - Ear pain [Recovered/Resolved]
  - Balance disorder [Recovered/Resolved]
  - Oral pain [Recovered/Resolved]
  - Aphagia [Recovered/Resolved]
  - Back pain [Recovered/Resolved]
  - Poor quality sleep [Unknown]
  - Impaired gastric emptying [Unknown]
  - Erectile dysfunction [Unknown]
  - Cough [Unknown]
  - Paranasal sinus hypersecretion [Unknown]
  - Paraesthesia [Unknown]
  - Hypoaesthesia [Unknown]
  - Weight decreased [Recovered/Resolved]
  - Dysgeusia [Recovered/Resolved]
  - Abdominal pain [Not Recovered/Not Resolved]
  - Nausea [Recovering/Resolving]
  - Eructation [Unknown]
  - Dyspepsia [Unknown]
  - Decreased appetite [Unknown]
  - Off label use [Recovered/Resolved]
  - Blood glucose increased [Unknown]
  - Glycosylated haemoglobin increased [Unknown]
